FAERS Safety Report 25124361 (Version 1)
Quarter: 2025Q1

REPORT INFORMATION
  Report Type: Spontaneous
  Country: PL (occurrence: PL)
  Receive Date: 20250326
  Receipt Date: 20250326
  Transmission Date: 20250409
  Serious: Yes (Hospitalization)
  Sender: ASTELLAS
  Company Number: PL-ASTELLAS-2025-AER-015653

PATIENT
  Age: 71 Year
  Sex: Male

DRUGS (8)
  1. GILTERITINIB [Suspect]
     Active Substance: GILTERITINIB
     Indication: Acute myeloid leukaemia recurrent
     Dosage: 3 TABLETS X 40 MG (120 MG) IN THE MORNING
     Route: 065
     Dates: start: 20240104
  2. GILTERITINIB [Suspect]
     Active Substance: GILTERITINIB
     Dosage: 5 TABLETS X 40 MG
     Route: 065
     Dates: start: 20250123
  3. ACENOCOUMAROL [Concomitant]
     Active Substance: ACENOCOUMAROL
     Indication: Product used for unknown indication
     Route: 065
     Dates: start: 2021
  4. TRAZODONE HYDROCHLORIDE [Concomitant]
     Active Substance: TRAZODONE HYDROCHLORIDE
     Indication: Product used for unknown indication
     Route: 065
  5. BILASTINE [Concomitant]
     Active Substance: BILASTINE
     Indication: Product used for unknown indication
     Route: 065
  6. DYMISTA [Concomitant]
     Active Substance: AZELASTINE HYDROCHLORIDE\FLUTICASONE PROPIONATE
     Indication: Product used for unknown indication
     Route: 065
  7. HYDROXYUREA [Concomitant]
     Active Substance: HYDROXYUREA
     Indication: Acute myelomonocytic leukaemia
     Route: 065
  8. THYROSOL [Concomitant]
     Indication: Hyperthyroidism
     Route: 065

REACTIONS (4)
  - Retinal artery embolism [Unknown]
  - Alanine aminotransferase increased [Unknown]
  - Overdose [Unknown]
  - Off label use [Unknown]

NARRATIVE: CASE EVENT DATE: 20241027
